FAERS Safety Report 10098320 (Version 3)
Quarter: 2014Q2

REPORT INFORMATION
  Report Type: Spontaneous
  Country: DK (occurrence: DK)
  Receive Date: 20140423
  Receipt Date: 20140623
  Transmission Date: 20141212
  Serious: Yes (Hospitalization, Disabling, Other)
  Sender: FDA-Public Use
  Company Number: DK-ROCHE-1382837

PATIENT
  Age: 61 Year
  Sex: Female

DRUGS (6)
  1. PEGASYS [Suspect]
     Indication: POLYCYTHAEMIA VERA
     Dosage: 40-65 MCG, SOLUTION FOR INJECTION IN PRE-FILLED SYRINGE, STRENGTH-135 MCG
     Route: 058
     Dates: start: 2009, end: 201311
  2. ALLOPURINOL ^DAK^ [Concomitant]
     Indication: GOUTY ARTHRITIS
  3. ANCOZAN [Concomitant]
     Indication: BLOOD PRESSURE INCREASED
  4. CARDIL [Concomitant]
     Indication: ANGINA PECTORIS
  5. METOPROLOL SUCCINATE [Concomitant]
     Indication: CARDIAC DISORDER
  6. SPARKAL MITE [Concomitant]
     Indication: DIURETIC THERAPY

REACTIONS (5)
  - Myalgia [Recovered/Resolved]
  - Back pain [Recovered/Resolved]
  - Lumbar spinal stenosis [Recovered/Resolved]
  - Chest pain [Not Recovered/Not Resolved]
  - Walking disability [Recovered/Resolved]
